FAERS Safety Report 10986364 (Version 1)
Quarter: 2015Q2

REPORT INFORMATION
  Report Type: Spontaneous
  Country: US (occurrence: None)
  Receive Date: 20150403
  Receipt Date: 20150403
  Transmission Date: 20150821
  Serious: Yes (Other)
  Sender: FDA-Public Use
  Company Number: None

PATIENT
  Age: 23 Year
  Sex: Male
  Weight: 74.84 kg

DRUGS (1)
  1. CLONAZEPAM. [Suspect]
     Active Substance: CLONAZEPAM
     Indication: ANXIETY
     Dosage: 1 PILL TWICE DAILY TAKEN BY MOUTH
     Route: 048

REACTIONS (10)
  - Migraine [None]
  - Nausea [None]
  - Suicidal ideation [None]
  - Anxiety [None]
  - Fatigue [None]
  - Loss of employment [None]
  - Depression [None]
  - Vision blurred [None]
  - Palpitations [None]
  - Withdrawal syndrome [None]

NARRATIVE: CASE EVENT DATE: 20150402
